FAERS Safety Report 19373565 (Version 5)
Quarter: 2022Q1

REPORT INFORMATION
  Report Type: Spontaneous
  Country: JP (occurrence: JP)
  Receive Date: 20210603
  Receipt Date: 20220308
  Transmission Date: 20220423
  Serious: Yes (Death, Other)
  Sender: FDA-Public Use
  Company Number: JP-BRISTOL-MYERS SQUIBB COMPANY-BMS-2021-053977

PATIENT
  Age: 73 Year
  Sex: Male
  Weight: 60 kg

DRUGS (2)
  1. OPDIVO [Suspect]
     Active Substance: NIVOLUMAB
     Indication: Non-small cell lung cancer recurrent
     Dosage: UNK
     Route: 041
     Dates: start: 20210309
  2. YERVOY [Suspect]
     Active Substance: IPILIMUMAB
     Indication: Non-small cell lung cancer recurrent
     Dosage: UNK
     Route: 041
     Dates: start: 20210309

REACTIONS (1)
  - Malignant neoplasm progression [Fatal]
